FAERS Safety Report 15674897 (Version 3)
Quarter: 2019Q3

REPORT INFORMATION
  Report Type: Spontaneous
  Country: JP (occurrence: JP)
  Receive Date: 20181130
  Receipt Date: 20190826
  Transmission Date: 20191004
  Serious: Yes (Other)
  Sender: FDA-Public Use
  Company Number: JP-009507513-1811JPN002672J

PATIENT

DRUGS (1)
  1. KEYTRUDA [Suspect]
     Active Substance: PEMBROLIZUMAB
     Indication: NON-SMALL CELL LUNG CANCER
     Dosage: 200 MILLIGRAM/KILOGRAM, Q3W
     Route: 041

REACTIONS (24)
  - Herpes zoster [Unknown]
  - Interstitial lung disease [Unknown]
  - Type 1 diabetes mellitus [Unknown]
  - Adrenal insufficiency [Unknown]
  - Skin toxicity [Unknown]
  - Tumour lysis syndrome [Unknown]
  - Infection [Unknown]
  - Thrombosis [Unknown]
  - Infusion site reaction [Unknown]
  - Blood creatine phosphokinase increased [Unknown]
  - Rash [Unknown]
  - Hypopituitarism [Unknown]
  - Hepatotoxicity [Unknown]
  - Pneumonia [Unknown]
  - Urinary tract infection [Unknown]
  - Pneumonitis [Unknown]
  - Fatigue [Unknown]
  - Nephropathy toxic [Unknown]
  - Anaemia [Unknown]
  - Decreased appetite [Unknown]
  - Hyponatraemia [Unknown]
  - Liver disorder [Unknown]
  - Colitis [Unknown]
  - Malaise [Unknown]
